FAERS Safety Report 5300414-1 (Version None)
Quarter: 2007Q2

REPORT INFORMATION
  Report Type: 
  Country: None (occurrence: None)
  Receive Date: 20070418
  Receipt Date: 20070410
  Transmission Date: 20071010
  Serious: Yes (Other)
  Sender: FDA-Public Use
  Company Number: PHNU2006DE04029

PATIENT
  Age: 20 Year
  Sex: Female
  Weight: 66 kg

DRUGS (16)
  1. IMMUNOSPORIN [Suspect]
     Indication: PYODERMA GANGRENOSUM
     Dosage: 200 MG DAILY
     Route: 048
     Dates: start: 20060601, end: 20060604
  2. IMMUNOSPORIN [Suspect]
     Dosage: 100 MG, QD
     Route: 048
     Dates: start: 20060605
  3. IMMUNOSPORIN [Suspect]
     Dosage: 50 MG, QD
     Route: 048
     Dates: start: 20060701, end: 20060701
  4. ANAESTHETICS [Concomitant]
  5. ANTIBIOTICS [Concomitant]
  6. IMIPENEM [Suspect]
  7. CLONT [Suspect]
  8. CLINDAMYCIN [Suspect]
  9. LINEZOLID [Suspect]
  10. CLAFORAN [Suspect]
  11. MEROPENEM [Suspect]
  12. FOSFOMYCIN [Suspect]
  13. DORMICUM [Suspect]
  14. KETANEST [Suspect]
  15. FENTANYL [Suspect]
  16. PROPOFOL [Suspect]

REACTIONS (6)
  - BLOOD ALKALINE PHOSPHATASE INCREASED [None]
  - BLOOD LACTATE DEHYDROGENASE INCREASED [None]
  - GAMMA-GLUTAMYLTRANSFERASE INCREASED [None]
  - HEPATOCELLULAR DAMAGE [None]
  - HYPERTENSION [None]
  - TRANSAMINASES INCREASED [None]
